FAERS Safety Report 24442993 (Version 1)
Quarter: 2024Q4

REPORT INFORMATION
  Report Type: Spontaneous
  Country: CA (occurrence: CA)
  Receive Date: 20241016
  Receipt Date: 20241016
  Transmission Date: 20250115
  Serious: Yes (Other)
  Sender: TEVA
  Company Number: CA-TTY-2020-CA-005249J

PATIENT
  Age: 57 Year
  Sex: Female

DRUGS (2)
  1. CANDESARTAN [Suspect]
     Active Substance: CANDESARTAN
     Indication: Migraine
     Dosage: 16 MILLIGRAM
     Route: 048
     Dates: start: 20180504
  2. TOPIRAMATE [Suspect]
     Active Substance: TOPIRAMATE
     Indication: Migraine
     Dosage: UNK
     Route: 065
     Dates: start: 201907

REACTIONS (4)
  - Cerebral haemorrhage [Unknown]
  - Headache [Unknown]
  - Multiple sclerosis [Unknown]
  - Drug ineffective for unapproved indication [Unknown]
